FAERS Safety Report 21146577 (Version 2)
Quarter: 2022Q3

REPORT INFORMATION
  Report Type: Spontaneous
  Country: CN (occurrence: CN)
  Receive Date: 20220729
  Receipt Date: 20220816
  Transmission Date: 20221026
  Serious: Yes (Other)
  Sender: FDA-Public Use
  Company Number: CN-BEIGENE USA INC-BGN-2022-007779

PATIENT

DRUGS (5)
  1. BRUKINSA [Suspect]
     Active Substance: ZANUBRUTINIB
     Indication: Mantle cell lymphoma
     Dosage: UNK
     Route: 048
     Dates: start: 202108
  2. BRUKINSA [Suspect]
     Active Substance: ZANUBRUTINIB
     Dosage: UNK
     Route: 048
  3. VERMIS [Concomitant]
     Indication: Cerebral infarction
  4. VINDESINE [Concomitant]
     Active Substance: VINDESINE
     Indication: Mantle cell lymphoma
  5. IBRUTINIB [Concomitant]
     Active Substance: IBRUTINIB
     Indication: Mantle cell lymphoma
     Dosage: UNK

REACTIONS (17)
  - Cerebral infarction [Unknown]
  - Mantle cell lymphoma recurrent [Unknown]
  - Bone marrow infiltration [Unknown]
  - Malignant neoplasm progression [Unknown]
  - Pericardial effusion [Unknown]
  - Hydrothorax [Unknown]
  - Haemorrhage subcutaneous [Unknown]
  - Oedema peripheral [Unknown]
  - Poor quality sleep [Unknown]
  - Night sweats [Unknown]
  - Pleural effusion [Unknown]
  - Platelet count decreased [Unknown]
  - Dyspnoea [Unknown]
  - Fall [Unknown]
  - Pyrexia [Unknown]
  - Bone pain [Unknown]
  - Bone swelling [Unknown]

NARRATIVE: CASE EVENT DATE: 20220101
